FAERS Safety Report 25382610 (Version 8)
Quarter: 2025Q4

REPORT INFORMATION
  Report Type: Report from Study
  Country: KR (occurrence: KR)
  Receive Date: 20250601
  Receipt Date: 20251216
  Transmission Date: 20260118
  Serious: Yes (Death, Hospitalization, Other)
  Sender: ABBVIE
  Company Number: KR-ABBVIE-6302958

PATIENT
  Age: 75 Year
  Sex: Male
  Weight: 55 kg

DRUGS (54)
  1. VENCLEXTA [Suspect]
     Active Substance: VENETOCLAX
     Indication: Acute myeloid leukaemia
     Route: 048
     Dates: start: 20250314, end: 20250314
  2. VENCLEXTA [Suspect]
     Active Substance: VENETOCLAX
     Indication: Acute myeloid leukaemia
     Route: 048
     Dates: start: 20250315, end: 20250315
  3. VENCLEXTA [Suspect]
     Active Substance: VENETOCLAX
     Indication: Acute myeloid leukaemia
     Route: 048
     Dates: start: 20250316, end: 20250402
  4. VENCLEXTA [Suspect]
     Active Substance: VENETOCLAX
     Indication: Acute myeloid leukaemia
     Route: 048
     Dates: start: 20250313, end: 20250313
  5. VENCLEXTA [Suspect]
     Active Substance: VENETOCLAX
     Indication: Acute myeloid leukaemia
     Route: 048
     Dates: start: 20250617, end: 20250617
  6. VENCLEXTA [Suspect]
     Active Substance: VENETOCLAX
     Indication: Acute myeloid leukaemia
     Route: 048
     Dates: start: 20250619, end: 20250627
  7. VENCLEXTA [Suspect]
     Active Substance: VENETOCLAX
     Indication: Acute myeloid leukaemia
     Route: 048
     Dates: start: 20250618, end: 20250618
  8. Citopcin [Concomitant]
     Indication: Infection prophylaxis
     Route: 048
     Dates: start: 20250311, end: 20250409
  9. Citopcin [Concomitant]
     Indication: Infection prophylaxis
     Route: 048
     Dates: start: 20250402, end: 20250402
  10. DIFLUCAN [Concomitant]
     Active Substance: FLUCONAZOLE
     Indication: Antifungal prophylaxis
     Dosage: 50 MG
     Route: 048
     Dates: start: 20250617, end: 20250706
  11. NYSTATIN [Concomitant]
     Active Substance: NYSTATIN
     Indication: Antifungal prophylaxis
     Dosage: UNIT DOSE: UNKOWN ML , PRN, ?JT NYSTATIN SYRUP
     Route: 048
     Dates: start: 20250404, end: 20250411
  12. MEGACE [Concomitant]
     Active Substance: MEGESTROL ACETATE
     Indication: Prophylaxis
     Route: 048
     Dates: start: 20250326, end: 20250401
  13. PANTOPRAZOLE SODIUM [Concomitant]
     Active Substance: PANTOPRAZOLE SODIUM
     Indication: Gastritis prophylaxis
     Route: 048
     Dates: start: 20250408, end: 20250706
  14. ACTIMOLS [Concomitant]
     Indication: Fatigue
     Dosage: SOLN
     Route: 048
     Dates: start: 20250409, end: 20250409
  15. ACTIMOLS [Concomitant]
     Indication: Fatigue
     Dosage: 10 ML SOLN
     Route: 048
     Dates: start: 20250410, end: 20250706
  16. ULTRACET [Concomitant]
     Active Substance: ACETAMINOPHEN\TRAMADOL HYDROCHLORIDE
     Indication: Arthralgia
     Dosage: INJ 50MG/ML
     Route: 048
     Dates: start: 20250314, end: 20250706
  17. ALOXI [Concomitant]
     Active Substance: PALONOSETRON HYDROCHLORIDE
     Indication: Prophylaxis of nausea and vomiting
     Dosage: FREQUENCY TEXT:  EVERY OTHER DAY
     Route: 042
     Dates: start: 20250313, end: 20250319
  18. ALOXI [Concomitant]
     Active Substance: PALONOSETRON HYDROCHLORIDE
     Indication: Prophylaxis of nausea and vomiting
     Dosage: FREQUENCY TEXT: EVERY OTHER DAY
     Route: 042
     Dates: start: 20250617, end: 20250623
  19. TRAMADOL HYDROCHLORIDE [Concomitant]
     Active Substance: TRAMADOL HYDROCHLORIDE
     Indication: Arthralgia
     Dosage: INJ 50MG/ML
     Route: 042
     Dates: start: 20250313, end: 20250313
  20. TRAMADOL HYDROCHLORIDE [Concomitant]
     Active Substance: TRAMADOL HYDROCHLORIDE
     Indication: Arthralgia
     Dosage: INJ 50MG/ML
     Route: 042
     Dates: start: 20250402, end: 20250402
  21. SALON [Concomitant]
     Indication: Acute myeloid leukaemia
     Route: 042
     Dates: start: 20250701, end: 20250704
  22. Levoplus [Concomitant]
     Indication: Infection prophylaxis
     Route: 048
     Dates: start: 20250508, end: 20250630
  23. OMAPONE PERI [Concomitant]
     Indication: Fatigue
     Dosage: INJ 952ML
     Route: 042
     Dates: start: 20250404, end: 20250411
  24. CELEBREX [Concomitant]
     Active Substance: CELECOXIB
     Indication: Arthralgia
     Route: 048
     Dates: start: 20250313, end: 20250425
  25. Dulackhan easy [Concomitant]
     Indication: Constipation prophylaxis
     Dosage: SYR 500ML
     Route: 048
     Dates: start: 20250403, end: 20250403
  26. VIDAZA [Concomitant]
     Active Substance: AZACITIDINE
     Indication: Acute myeloid leukaemia
     Dosage: INJ 100MG
     Route: 042
     Dates: start: 20250313, end: 20250319
  27. VIDAZA [Concomitant]
     Active Substance: AZACITIDINE
     Indication: Acute myeloid leukaemia
     Route: 042
     Dates: start: 20250617, end: 20250623
  28. PENIRAMIN [Concomitant]
     Indication: Prophylaxis
     Dosage: INJ PRN
     Route: 042
     Dates: start: 20250314, end: 20250316
  29. PENIRAMIN [Concomitant]
     Indication: Prophylaxis
     Dosage: IN PRN
     Route: 042
     Dates: start: 20250403, end: 20250411
  30. PENIRAMIN [Concomitant]
     Indication: Prophylaxis
     Dosage: IN PRN
     Route: 042
     Dates: start: 20250616, end: 20250616
  31. PENIRAMIN [Concomitant]
     Indication: Prophylaxis
     Route: 042
     Dates: start: 20250628, end: 20250705
  32. PANTOPRAZOLE SODIUM [Concomitant]
     Active Substance: PANTOPRAZOLE SODIUM
     Indication: Gastritis prophylaxis
     Route: 042
     Dates: start: 20250705, end: 20250706
  33. PANTOPRAZOLE SODIUM [Concomitant]
     Active Substance: PANTOPRAZOLE SODIUM
     Indication: Gastritis prophylaxis
     Route: 042
     Dates: start: 20250403, end: 20250407
  34. PANTOPRAZOLE SODIUM [Concomitant]
     Active Substance: PANTOPRAZOLE SODIUM
     Indication: Gastritis prophylaxis
     Route: 048
     Dates: start: 20250408, end: 20250706
  35. ALDACTONE [Concomitant]
     Active Substance: SPIRONOLACTONE
     Indication: Prophylaxis
     Route: 048
     Dates: start: 20250317, end: 20250409
  36. LASIX [Concomitant]
     Active Substance: FUROSEMIDE
     Indication: Prophylaxis
     Dosage: FREQUENCY TEXT: PRN
     Route: 042
     Dates: start: 20250316, end: 20250319
  37. LASIX [Concomitant]
     Active Substance: FUROSEMIDE
     Indication: Prophylaxis
     Dosage: FREQUENCY TEXT: PRN
     Route: 042
     Dates: start: 20250404, end: 20250404
  38. LASIX [Concomitant]
     Active Substance: FUROSEMIDE
     Indication: Prophylaxis
     Dosage: FREQUENCY TEXT: PRN
     Route: 042
     Dates: start: 20250704, end: 20250704
  39. LASIX [Concomitant]
     Active Substance: FUROSEMIDE
     Indication: Prophylaxis
     Dosage: FREQUENCY TEXT: PRN, START DATE TEXT: 0
     Route: 042
     Dates: start: 20250704, end: 20250704
  40. NOXAFIL [Concomitant]
     Active Substance: POSACONAZOLE
     Indication: Antifungal prophylaxis
     Dosage: GASTRO RESISTANT TAB 100MG
     Route: 048
     Dates: start: 20250402, end: 20250425
  41. NOXAFIL [Concomitant]
     Active Substance: POSACONAZOLE
     Indication: Antifungal prophylaxis
     Dosage: GASTRO RESISTANT TAB 100MG
     Route: 048
     Dates: start: 20250314, end: 20250425
  42. NOXAFIL [Concomitant]
     Active Substance: POSACONAZOLE
     Indication: Antifungal prophylaxis
     Dosage: GASTRO RESISTANT TAB 100MG
     Route: 048
     Dates: start: 20250313, end: 20250313
  43. Megacef [Concomitant]
     Indication: Prophylaxis
     Dosage: F SUSP
     Route: 048
     Dates: start: 20250409, end: 20250704
  44. PHAZYME COMPLEX [Concomitant]
     Indication: Gastrointestinal disorder prophylaxis
     Route: 048
     Dates: start: 20250616, end: 20250616
  45. ORNITHINE ASPARTATE [Concomitant]
     Active Substance: ORNITHINE ASPARTATE
     Indication: Hepatic encephalopathy prophylaxis
     Route: 042
     Dates: start: 20250405, end: 20250411
  46. SK ALBUMIN [Concomitant]
     Indication: Hypoalbuminaemia
     Dosage: INJ 20% 100ML
     Route: 042
     Dates: start: 20250402, end: 20250403
  47. SK ALBUMIN [Concomitant]
     Indication: Hypoalbuminaemia
     Route: 042
     Dates: start: 20250505, end: 20250511
  48. ALLOPURINOL [Concomitant]
     Active Substance: ALLOPURINOL
     Indication: Prophylaxis
     Dosage: TIME INTERVAL: 0.33333333 DAYS
     Route: 048
     Dates: start: 20250312, end: 20250402
  49. Dulackhan easy [Concomitant]
     Indication: Constipation
     Dosage: DULACKHAN EASY SYR 15ML
     Route: 048
     Dates: start: 20250618, end: 20250628
  50. Dulackhan easy [Concomitant]
     Indication: Constipation
     Dosage: TIME INTERVAL: 0.33333333 DAYS: DULACKHAN EASY SYR 15ML
     Route: 048
     Dates: start: 20250326, end: 20250401
  51. MAGNESIUM HYDROXIDE [Concomitant]
     Active Substance: MAGNESIUM HYDROXIDE
     Indication: Constipation
     Dosage: 500 MG
     Route: 048
     Dates: start: 20250618, end: 20250629
  52. NEUPOGEN [Concomitant]
     Active Substance: FILGRASTIM
     Indication: Neutropenia
     Dosage: GRASIN PREFILLED SYRINGE INJ 300 G/0.7ML
     Route: 058
     Dates: start: 20250630, end: 20250630
  53. Furix [Concomitant]
     Indication: Prophylaxis
     Dosage: TAB
     Route: 048
     Dates: start: 20250317, end: 20250319
  54. Furix [Concomitant]
     Indication: Prophylaxis
     Dosage: TAB
     Route: 048
     Dates: start: 20250320, end: 20250409

REACTIONS (4)
  - Femur fracture [Fatal]
  - Pneumonia [Recovered/Resolved]
  - Acute kidney injury [Recovered/Resolved]
  - Pneumonia aspiration [Fatal]

NARRATIVE: CASE EVENT DATE: 20250402
